FAERS Safety Report 4665790-1 (Version None)
Quarter: 2005Q2

REPORT INFORMATION
  Report Type: 
  Country: None (occurrence: None)
  Receive Date: 20050519
  Receipt Date: 20050513
  Transmission Date: 20051028
  Serious: Yes (Death, Other)
  Sender: FDA-Public Use
  Company Number: 200514296GDDC

PATIENT
  Age: 73 Year
  Sex: Male

DRUGS (2)
  1. CLEXANE [Suspect]
     Indication: PHLEBITIS
     Route: 058
     Dates: start: 20030312, end: 20030314
  2. CLEXANE [Suspect]
     Indication: THROMBOPHLEBITIS
     Route: 058
     Dates: start: 20030312, end: 20030314

REACTIONS (3)
  - DEATH [None]
  - RASH [None]
  - THROMBOCYTOPENIA [None]
